FAERS Safety Report 7648309-2 (Version None)
Quarter: 2011Q3

REPORT INFORMATION
  Report Type: 
  Country: None (occurrence: None)
  Receive Date: 20110801
  Receipt Date: 20110725
  Transmission Date: 20111222
  Serious: Yes (Other)
  Sender: FDA-Public Use
  Company Number: US-PFIZER INC-2011156828

PATIENT
  Sex: Female
  Weight: 65.76 kg

DRUGS (8)
  1. CELEBREX [Suspect]
     Indication: LOWER LIMB FRACTURE
     Dosage: 200 MG, 1X/DAY
     Dates: start: 20100101
  2. METFORMIN [Concomitant]
     Dosage: 500 MG, 2X/DAY
  3. SYNTHROID [Concomitant]
     Dosage: 75 MG, 1X/DAY
  4. VYTORIN [Concomitant]
     Dosage: 10/25 MG, 1X/DAY
  5. CELEBREX [Suspect]
     Indication: KNEE OPERATION
     Dosage: 100 MG, 1X/DAY
  6. MAXZIDE [Concomitant]
     Dosage: 75/50 MG, UNK
  7. PAXIL [Concomitant]
     Dosage: 10 MG, 1X/DAY
  8. ALLEGRA [Concomitant]
     Dosage: UNK, 1X/DAY

REACTIONS (3)
  - RENAL DISORDER [None]
  - ABDOMINAL DISCOMFORT [None]
  - ROAD TRAFFIC ACCIDENT [None]
